FAERS Safety Report 5916068-7 (Version None)
Quarter: 2008Q4

REPORT INFORMATION
  Report Type: 
  Country: None (occurrence: None)
  Receive Date: 20081013
  Receipt Date: 20081007
  Transmission Date: 20090506
  Serious: Yes (Hospitalization)
  Sender: FDA-Public Use
  Company Number: ES-BRISTOL-MYERS SQUIBB COMPANY-14348676

PATIENT
  Age: 7 Decade
  Sex: Female

DRUGS (1)
  1. SPRYCEL [Suspect]
     Route: 048

REACTIONS (3)
  - DIARRHOEA [None]
  - INTERSTITIAL LUNG DISEASE [None]
  - RESPIRATORY FAILURE [None]
